FAERS Safety Report 6468222-6 (Version None)
Quarter: 2009Q4

REPORT INFORMATION
  Report Type: 
  Country: None (occurrence: None)
  Receive Date: 20091130
  Receipt Date: 20091110
  Transmission Date: 20100525
  Serious: Yes (Hospitalization)
  Sender: FDA-Public Use
  Company Number: 2009PV038709

PATIENT
  Age: 56 Year
  Sex: Female
  Weight: 74.8435 kg

DRUGS (12)
  1. SYMLIN [Suspect]
     Indication: TYPE 1 DIABETES MELLITUS
     Dosage: 60 MCG;TID; SC 15 MCG; TID;SC
     Route: 058
     Dates: start: 20090301, end: 20090301
  2. SYMLIN [Suspect]
     Indication: TYPE 1 DIABETES MELLITUS
     Dosage: 60 MCG;TID; SC 15 MCG; TID;SC
     Route: 058
     Dates: start: 20090301, end: 20090701
  3. SYMLIN [Suspect]
     Indication: TYPE 1 DIABETES MELLITUS
     Dosage: 60 MCG;TID; SC 15 MCG; TID;SC
     Route: 058
     Dates: start: 20090901
  4. HUMALOG [Concomitant]
  5. SYNTHROID [Concomitant]
  6. CLINORIL [Concomitant]
  7. ANTIGLAUCOMA [Concomitant]
  8. PREPARATIONS [Concomitant]
  9. MIOTICS [Concomitant]
  10. LIPITOR [Concomitant]
  11. ACETAMINOPHEN [Concomitant]
  12. ESTROGEN NOS [Concomitant]

REACTIONS (3)
  - BACK PAIN [None]
  - BOWEL MOVEMENT IRREGULARITY [None]
  - HYPOPHAGIA [None]
